FAERS Safety Report 17573089 (Version 1)
Quarter: 2020Q1

REPORT INFORMATION
  Report Type: Spontaneous
  Country: US (occurrence: US)
  Receive Date: 20200323
  Receipt Date: 20200323
  Transmission Date: 20200409
  Serious: Yes (Hospitalization)
  Sender: FDA-Public Use
  Company Number: US-ACTELION-A-US2020-203126

PATIENT
  Sex: Female

DRUGS (3)
  1. OPSUMIT [Suspect]
     Active Substance: MACITENTAN
     Indication: PULMONARY ARTERIAL HYPERTENSION
     Dosage: 10 MG, QD
     Route: 048
  2. WARFARIN [Concomitant]
     Active Substance: WARFARIN
  3. UPTRAVI [Suspect]
     Active Substance: SELEXIPAG
     Indication: PULMONARY ARTERIAL HYPERTENSION
     Dosage: 1400 MCG, BID
     Route: 048

REACTIONS (11)
  - Malaise [Unknown]
  - Anxiety [Unknown]
  - Weight increased [Recovering/Resolving]
  - Dehydration [Unknown]
  - Hypokinesia [Unknown]
  - Syncope [Unknown]
  - Loss of consciousness [Unknown]
  - Influenza [Unknown]
  - Muscular weakness [Unknown]
  - Nausea [Unknown]
  - Blood potassium decreased [Unknown]
